FAERS Safety Report 8496206-5 (Version None)
Quarter: 2012Q3

REPORT INFORMATION
  Report Type: 
  Country: None (occurrence: None)
  Receive Date: 20120709
  Receipt Date: 20120702
  Transmission Date: 20120928
  Serious: Yes (Congenital Anomaly)
  Sender: FDA-Public Use
  Company Number: GB-JNJFOC-20120702162

PATIENT
  Sex: Male
  Weight: 3.26 kg

DRUGS (10)
  1. CO-DYDRAMOL [Concomitant]
     Indication: FOETAL EXPOSURE DURING PREGNANCY
     Dosage: 1-2, CONTINUED TO THE END OF PREGNANCY
     Route: 064
     Dates: start: 20111019
  2. FLUOXETINE [Concomitant]
     Indication: FOETAL EXPOSURE DURING PREGNANCY
     Route: 064
     Dates: start: 20081027
  3. AMITRIPTYLINE HCL [Concomitant]
     Indication: FOETAL EXPOSURE DURING PREGNANCY
     Route: 064
     Dates: start: 20110920
  4. ALBUTEROL SULATE [Concomitant]
     Indication: FOETAL EXPOSURE DURING PREGNANCY
     Route: 064
     Dates: start: 20110914
  5. GAVISCON [Concomitant]
     Indication: FOETAL EXPOSURE DURING PREGNANCY
     Route: 064
     Dates: start: 20120112
  6. RAMIPRIL [Concomitant]
     Indication: FOETAL EXPOSURE DURING PREGNANCY
     Route: 064
     Dates: start: 20080909, end: 20110915
  7. CO-DYDRAMOL [Concomitant]
     Dosage: 300/500
     Route: 064
     Dates: start: 20120511
  8. TOPAMAX [Suspect]
     Indication: FOETAL EXPOSURE DURING PREGNANCY
     Route: 064
     Dates: start: 20081121, end: 20110915
  9. PROPRANOLOL [Concomitant]
     Indication: FOETAL EXPOSURE DURING PREGNANCY
     Route: 064
     Dates: start: 20111111
  10. ACETAMINOPHEN AND CODEINE PHOSPHATE [Concomitant]
     Indication: FOETAL EXPOSURE DURING PREGNANCY
     Route: 064

REACTIONS (1)
  - HIP DYSPLASIA [None]
